FAERS Safety Report 16745107 (Version 1)
Quarter: 2019Q3

REPORT INFORMATION
  Report Type: Spontaneous
  Country: US (occurrence: US)
  Receive Date: 20190827
  Receipt Date: 20190827
  Transmission Date: 20191005
  Serious: Yes (Hospitalization)
  Sender: FDA-Public Use
  Company Number: US-GLAXOSMITHKLINE-US2019AMR153804

PATIENT
  Sex: Male

DRUGS (1)
  1. ADVAIR DISKUS [Suspect]
     Active Substance: FLUTICASONE PROPIONATE\SALMETEROL XINAFOATE
     Indication: PRODUCT USED FOR UNKNOWN INDICATION
     Dosage: UNK
     Route: 065
     Dates: start: 201904

REACTIONS (4)
  - Asthma [Recovering/Resolving]
  - Chronic obstructive pulmonary disease [Recovering/Resolving]
  - Heart rate increased [Recovering/Resolving]
  - Oxygen consumption decreased [Recovering/Resolving]

NARRATIVE: CASE EVENT DATE: 2019
